FAERS Safety Report 6827373-4 (Version None)
Quarter: 2010Q3

REPORT INFORMATION
  Report Type: 
  Country: None (occurrence: None)
  Receive Date: 20100709
  Receipt Date: 20100707
  Transmission Date: 20110219
  Serious: Yes (Other)
  Sender: FDA-Public Use
  Company Number: A0868935A

PATIENT
  Age: 40 Year
  Sex: Male

DRUGS (1)
  1. TARGET NTS 21MG [Suspect]
     Indication: SMOKING CESSATION THERAPY
     Route: 062
     Dates: start: 20100705

REACTIONS (6)
  - AMNESIA [None]
  - CONVULSION [None]
  - DEJA VU [None]
  - DREAMY STATE [None]
  - MEMORY IMPAIRMENT [None]
  - MENTAL IMPAIRMENT [None]
